FAERS Safety Report 6068648-9 (Version None)
Quarter: 2009Q1

REPORT INFORMATION
  Report Type: 
  Country: None (occurrence: None)
  Receive Date: 20090206
  Receipt Date: 20090130
  Transmission Date: 20090719
  Serious: Yes (Congenital Anomaly)
  Sender: FDA-Public Use
  Company Number: A0723728A

PATIENT
  Sex: Female
  Weight: 2.8 kg

DRUGS (2)
  1. PAXIL [Suspect]
     Indication: DEPRESSION
     Dosage: 10MG PER DAY
     Dates: start: 20000404, end: 20010901
  2. VITAMIN TAB [Concomitant]
     Indication: PREGNANCY
     Dates: start: 20010119, end: 20010914

REACTIONS (3)
  - CYTOGENETIC ABNORMALITY [None]
  - MULTIPLE CONGENITAL ABNORMALITIES [None]
  - VENTRICULAR SEPTAL DEFECT [None]
